FAERS Safety Report 16358211 (Version 4)
Quarter: 2019Q3

REPORT INFORMATION
  Report Type: Report from Study
  Country: US (occurrence: US)
  Receive Date: 20190527
  Receipt Date: 20190916
  Transmission Date: 20191004
  Serious: Yes (Hospitalization, Other)
  Sender: FDA-Public Use
  Company Number: US-TAKEDA-2019TUS009121

PATIENT
  Sex: Female

DRUGS (1)
  1. PONATINIB [Suspect]
     Active Substance: PONATINIB
     Indication: CHRONIC MYELOID LEUKAEMIA
     Dosage: 15 MILLIGRAM, QD
     Route: 048
     Dates: start: 201901

REACTIONS (20)
  - Panniculitis [Unknown]
  - Nausea [Unknown]
  - Cardiac aneurysm [Unknown]
  - Bradycardia [Unknown]
  - Constipation [Recovering/Resolving]
  - Hypoaesthesia [Unknown]
  - Bone pain [Unknown]
  - Gastrointestinal disorder [Unknown]
  - Cerebrovascular accident [Unknown]
  - Contusion [Unknown]
  - Fatigue [Unknown]
  - Atrial septal defect [Unknown]
  - Migraine [Unknown]
  - Hypertension [Unknown]
  - Paraesthesia [Unknown]
  - Abdominal distension [Unknown]
  - Palpitations [Unknown]
  - Flatulence [Unknown]
  - Muscle spasms [Unknown]
  - Electrocardiogram QT prolonged [Unknown]
